FAERS Safety Report 15431320 (Version 1)
Quarter: 2018Q4

REPORT INFORMATION
  Report Type: Report from Study
  Country: US (occurrence: US)
  Receive Date: 20180926
  Receipt Date: 20180926
  Transmission Date: 20190204
  Serious: Yes (Hospitalization)
  Sender: FDA-Public Use
  Company Number: US-AGIOS-1808US00213

PATIENT
  Age: 55 Year
  Sex: Male
  Weight: 79 kg

DRUGS (5)
  1. PLACEBO [Suspect]
     Active Substance: UNSPECIFIED INGREDIENT
     Indication: CHOLANGIOCARCINOMA
     Dosage: 500 MILLIGRAM, QD
     Route: 048
     Dates: start: 20180420, end: 20180827
  2. OXYCODONE [Concomitant]
     Active Substance: OXYCODONE
     Indication: ABDOMINAL PAIN
     Dosage: 40 MILLIGRAM, BID
     Route: 048
     Dates: start: 201805
  3. ACETAMINOPHEN W/HYDROCODONE [Concomitant]
     Active Substance: ACETAMINOPHEN\HYDROCODONE
     Indication: ABDOMINAL PAIN
     Dosage: 325 MILLIGRAM, Q6H, PRN
     Route: 048
     Dates: start: 201705
  4. PLACEBO [Suspect]
     Active Substance: UNSPECIFIED INGREDIENT
     Dosage: 500 MILLIGRAM, QD
     Route: 048
     Dates: start: 20180831, end: 20180911
  5. SENNA                              /00571901/ [Concomitant]
     Active Substance: SENNOSIDES A AND B
     Indication: CONSTIPATION
     Dosage: 50 MILLIGRAM, QD
     Route: 048
     Dates: start: 201705

REACTIONS (1)
  - Vomiting [Recovered/Resolved]

NARRATIVE: CASE EVENT DATE: 20180824
